FAERS Safety Report 4833289-5 (Version None)
Quarter: 2005Q4

REPORT INFORMATION
  Report Type: 
  Country: None (occurrence: None)
  Receive Date: 20051121
  Receipt Date: 20050905
  Transmission Date: 20060501
  Serious: Yes (Hospitalization, Disabling, Other)
  Sender: FDA-Public Use
  Company Number: CA-GILEAD-2005-0008669

PATIENT
  Sex: Male
  Weight: 75 kg

DRUGS (7)
  1. VIREAD [Suspect]
     Indication: HIV INFECTION
     Route: 048
     Dates: start: 20050505, end: 20050507
  2. VIREAD [Suspect]
     Route: 048
     Dates: start: 20050412, end: 20050505
  3. KALETRA [Suspect]
     Indication: HIV INFECTION
     Route: 048
     Dates: start: 20050412, end: 20050507
  4. LAMIVUDINE [Concomitant]
     Indication: HIV INFECTION
  5. CENTRUM FORTE [Concomitant]
     Indication: HIV INFECTION
     Route: 048
  6. HYDRASENSE [Concomitant]
     Indication: RHINITIS
  7. NASACORT AQ [Concomitant]
     Indication: RHINITIS

REACTIONS (6)
  - BLOOD AMYLASE INCREASED [None]
  - CELLULITIS [None]
  - HEPATIC CIRRHOSIS [None]
  - NEPHROTIC SYNDROME [None]
  - RENAL FAILURE ACUTE [None]
  - SPLENOMEGALY [None]
